FAERS Safety Report 6727247-3 (Version None)
Quarter: 2010Q2

REPORT INFORMATION
  Report Type: 
  Country: None (occurrence: None)
  Receive Date: 20100517
  Receipt Date: 20100507
  Transmission Date: 20101027
  Serious: Yes (Hospitalization)
  Sender: FDA-Public Use
  Company Number: FR-MPIJNJ-2007_03775

PATIENT

DRUGS (8)
  1. VELCADE [Suspect]
     Indication: PERIPHERAL T-CELL LYMPHOMA UNSPECIFIED
     Dosage: 2.51 MG, UNK
     Route: 042
     Dates: start: 20070919, end: 20070923
  2. PREDNISONE TAB [Suspect]
     Indication: PERIPHERAL T-CELL LYMPHOMA UNSPECIFIED
     Dosage: 120.00 MG, UNK
     Route: 048
     Dates: start: 20070919, end: 20070923
  3. DOXORUBICIN HCL [Suspect]
     Indication: PERIPHERAL T-CELL LYMPHOMA UNSPECIFIED
     Dosage: 125.00 MG, UNK
     Route: 042
     Dates: start: 20070919, end: 20070919
  4. CYCLOPHOSPHAMIDE [Suspect]
     Indication: PERIPHERAL T-CELL LYMPHOMA UNSPECIFIED
     Dosage: 2000.00 MG, UNK
     Route: 042
     Dates: start: 20070919, end: 20070919
  5. ELDISINE [Suspect]
     Indication: PERIPHERAL T-CELL LYMPHOMA UNSPECIFIED
     Dosage: 3.34 MG, UNK
     Route: 042
     Dates: start: 20070919, end: 20070923
  6. BLEOMYCIN SULFATE [Suspect]
     Indication: PERIPHERAL T-CELL LYMPHOMA UNSPECIFIED
     Dosage: 10.00 MG, UNK
     Route: 042
     Dates: start: 20070919, end: 20070923
  7. METHOTREXATE [Suspect]
     Indication: PERIPHERAL T-CELL LYMPHOMA UNSPECIFIED
     Dosage: 15.00 MG, UNK
     Route: 039
     Dates: start: 20070919, end: 20070919
  8. GRANOCYTE 13-34 [Suspect]
     Indication: PERIPHERAL T-CELL LYMPHOMA UNSPECIFIED
     Dosage: 150 UG, UNK
     Route: 065
     Dates: start: 20070924, end: 20070929

REACTIONS (1)
  - NEUTROPENIC INFECTION [None]
